FAERS Safety Report 8369042-8 (Version None)
Quarter: 2012Q2

REPORT INFORMATION
  Report Type: 
  Country: None (occurrence: None)
  Receive Date: 20120518
  Receipt Date: 20120507
  Transmission Date: 20120825
  Serious: Yes (Other)
  Sender: FDA-Public Use
  Company Number: US-ROCHE-1049142

PATIENT
  Sex: Male
  Weight: 127.12 kg

DRUGS (11)
  1. NEXIUM [Concomitant]
     Indication: GASTROOESOPHAGEAL REFLUX DISEASE
     Route: 048
     Dates: start: 20080515
  2. XOLAIR [Suspect]
     Indication: ASTHMA
     Route: 058
     Dates: start: 20090625, end: 20120220
  3. QVAR 40 [Concomitant]
     Indication: ASTHMA
     Route: 042
     Dates: start: 20080515
  4. CHLORTHALIDONE [Concomitant]
     Indication: HYPERTENSION
     Route: 048
  5. CETIRIZINE [Concomitant]
     Indication: HYPERSENSITIVITY
     Route: 048
  6. SUDAFED 12 HOUR [Concomitant]
     Route: 048
  7. FLOMAX [Concomitant]
     Indication: BENIGN PROSTATIC HYPERPLASIA
     Route: 048
  8. LORATADINE [Concomitant]
     Indication: HYPERSENSITIVITY
     Route: 048
  9. METAMUCIL-2 [Concomitant]
     Indication: BACK PAIN
     Route: 048
  10. SINGULAIR [Concomitant]
     Indication: ASTHMA
     Route: 048
     Dates: start: 20080515
  11. GABAPENTIN [Concomitant]
     Route: 048
     Dates: start: 20100202

REACTIONS (6)
  - THROAT TIGHTNESS [None]
  - CARDIAC DISORDER [None]
  - DYSPNOEA [None]
  - MUSCLE TIGHTNESS [None]
  - HEART RATE INCREASED [None]
  - CHEST DISCOMFORT [None]
